FAERS Safety Report 15969121 (Version 2)
Quarter: 2019Q1

REPORT INFORMATION
  Report Type: Spontaneous
  Country: US (occurrence: US)
  Receive Date: 20190215
  Receipt Date: 20190219
  Transmission Date: 20190418
  Serious: No
  Sender: FDA-Public Use
  Company Number: US-B.I. PHARMACEUTICALS,INC./RIDGEFIELD-2019-BI-005524

PATIENT
  Sex: Female

DRUGS (2)
  1. SPIRIVA RESPIMAT [Suspect]
     Active Substance: TIOTROPIUM BROMIDE
     Dosage: ADMINISTRATION CORRECT? YES; ACTION(S) TAKEN WITH PRODUCT: DOSE NOT CHANGED
     Route: 055
     Dates: start: 2019
  2. SPIRIVA RESPIMAT [Suspect]
     Active Substance: TIOTROPIUM BROMIDE
     Indication: ASTHMA
     Dosage: FORM OF ADMIN: INHALATION SPRAY; ADMINISTRATION CORRECT? YES; ACTION(S) TAKEN: DRUG WITHDRAWN
     Route: 055

REACTIONS (5)
  - Fall [Unknown]
  - Visual impairment [Not Recovered/Not Resolved]
  - Back disorder [Unknown]
  - Dyspnoea [Unknown]
  - Spinal fracture [Unknown]

NARRATIVE: CASE EVENT DATE: 2018
